FAERS Safety Report 17294665 (Version 3)
Quarter: 2022Q2

REPORT INFORMATION
  Report Type: Spontaneous
  Country: US (occurrence: US)
  Receive Date: 20200121
  Receipt Date: 20220420
  Transmission Date: 20220721
  Serious: Yes (Hospitalization)
  Sender: FDA-Public Use
  Company Number: US-PFIZER INC-2020021161

PATIENT
  Age: 57 Year
  Sex: Female
  Weight: 67.59 kg

DRUGS (1)
  1. AMLODIPINE BESYLATE [Suspect]
     Active Substance: AMLODIPINE BESYLATE
     Dosage: 10 MG

REACTIONS (8)
  - Cardiomegaly [Unknown]
  - Cardiac valve disease [Unknown]
  - Drug ineffective [Unknown]
  - Illness [Unknown]
  - Gait disturbance [Unknown]
  - Dizziness [Unknown]
  - Dysstasia [Unknown]
  - Feeling abnormal [Unknown]
